FAERS Safety Report 7262853-1 (Version None)
Quarter: 2011Q1

REPORT INFORMATION
  Report Type: 
  Country: None (occurrence: None)
  Receive Date: 20110130
  Receipt Date: 20100902
  Transmission Date: 20110831
  Serious: No
  Sender: FDA-Public Use
  Company Number: US-ABBOTT-10P-163-0668062-00

PATIENT
  Age: 72 Year
  Sex: Female

DRUGS (11)
  1. DIXYCLOMINE [Concomitant]
     Indication: GASTROINTESTINAL PAIN
  2. FISH OIL [Concomitant]
     Indication: VITAMIN SUPPLEMENTATION
  3. OMEPRAZOLE [Concomitant]
     Indication: ABDOMINAL DISCOMFORT
  4. LIPITOR [Concomitant]
     Indication: BLOOD CHOLESTEROL INCREASED
  5. CENTRUM [Concomitant]
     Indication: VITAMIN SUPPLEMENTATION
  6. NASONEX [Concomitant]
     Indication: PRODUCT USED FOR UNKNOWN INDICATION
     Dosage: OTC
     Route: 045
  7. DARVOCET-N 100 [Concomitant]
     Indication: PAIN
  8. REFRESH TEARS [Concomitant]
     Indication: DRY EYE
  9. HUMIRA [Suspect]
     Indication: CROHN'S DISEASE
     Dates: start: 20100709
  10. AMLODIPINE [Concomitant]
     Indication: HYPERTENSION
  11. XANAX [Concomitant]
     Indication: ANXIETY

REACTIONS (3)
  - MUSCULOSKELETAL CHEST PAIN [None]
  - CHEST PAIN [None]
  - GASTROINTESTINAL PAIN [None]
